FAERS Safety Report 10750605 (Version 1)
Quarter: 2015Q1

REPORT INFORMATION
  Report Type: Spontaneous
  Country: US (occurrence: None)
  Receive Date: 20150126
  Receipt Date: 20150126
  Transmission Date: 20150721
  Serious: Yes (Hospitalization, Other)
  Sender: FDA-Public Use
  Company Number: A-US2014-97851

PATIENT
  Age: 73 Year
  Sex: Female
  Weight: 59.4 kg

DRUGS (23)
  1. SILDENAFIL. [Concomitant]
     Active Substance: SILDENAFIL
  2. LASIX [Concomitant]
     Active Substance: FUROSEMIDE
  3. LEXAPRO [Concomitant]
     Active Substance: ESCITALOPRAM OXALATE
  4. METAMUCIL THERAPY FOR REGULARITY [Concomitant]
     Active Substance: PSYLLIUM HUSK
  5. PREDNISONE (PREDNISONE ACETATE) [Concomitant]
  6. TYLENOL (CHLORPHENAMINE MALEATE, DEXTROMETHORPHAN HYDROBROMIDE, PARACETAMOL, PSEUDOEPHEDRINE HYDROCHLORIDE) [Concomitant]
  7. VENTOLIN (GUAIFENESIN, SALBUTAMOL SULFATE) [Concomitant]
  8. VITAMIN D (COLECALCIFEROL) [Concomitant]
  9. TYLENOL WITH CODEINE (CODEINE PHOSPHATE, PARACETAMOL) [Concomitant]
  10. LEVOXYL (LEVOTHYROXINE SODIUM) [Concomitant]
  11. COLACE [Concomitant]
     Active Substance: DOCUSATE SODIUM
  12. PROAIR HFA [Concomitant]
     Active Substance: ALBUTEROL SULFATE
  13. FEOSOL (FERROUS SULFATE) [Concomitant]
  14. COUMADIN [Concomitant]
     Active Substance: WARFARIN SODIUM
  15. KLONOPIN [Concomitant]
     Active Substance: CLONAZEPAM
  16. NEXIUM I.V. [Concomitant]
     Active Substance: ESOMEPRAZOLE SODIUM
  17. TRACLEER [Suspect]
     Active Substance: BOSENTAN\BOSENTAN MONOHYDRATE
     Indication: PULMONARY ARTERIAL HYPERTENSION
     Route: 048
  18. ADVAIR DISKUS [Concomitant]
     Active Substance: FLUTICASONE PROPIONATE\SALMETEROL XINAFOATE
  19. ASPIRIN (ACETYLSALICYLIC ACID) [Concomitant]
     Active Substance: ASPIRIN
  20. CARDIZEM (DILTIAZEM HYDROCHLORIDE) [Concomitant]
  21. CALCIUM (CALCIUM, ERGOCALCIFEROL) [Concomitant]
  22. DIGOXIN (BETA-ACETYLDIGOXIN) [Concomitant]
     Active Substance: .BETA.-ACETYLDIGOXIN
  23. POTASSIUM CHLORIDE (POTASSIUM CHLORIDE) [Concomitant]
     Active Substance: POTASSIUM CHLORIDE

REACTIONS (15)
  - Asthenia [None]
  - Fatigue [None]
  - Malaise [None]
  - Dyspnoea [None]
  - Breast mass [None]
  - Cardiomegaly [None]
  - Oedema peripheral [None]
  - Cough [None]
  - Orthopnoea [None]
  - Lower respiratory tract inflammation [None]
  - Pleural effusion [None]
  - Chronic respiratory failure [None]
  - Tachycardia [None]
  - Chest discomfort [None]
  - Dyspnoea exertional [None]

NARRATIVE: CASE EVENT DATE: 20140415
